FAERS Safety Report 9916306 (Version 1)
Quarter: 2014Q1

REPORT INFORMATION
  Report Type: Spontaneous
  Country: GB (occurrence: GB)
  Receive Date: 20140221
  Receipt Date: 20140221
  Transmission Date: 20141002
  Serious: Yes (Hospitalization)
  Sender: FDA-Public Use
  Company Number: GB-JNJFOC-20140211040

PATIENT
  Age: 43 Year
  Sex: Female
  Weight: 65.7 kg

DRUGS (5)
  1. XARELTO [Suspect]
     Indication: EMBOLISM VENOUS
     Route: 048
     Dates: start: 20140124, end: 20140127
  2. XARELTO [Suspect]
     Indication: PULMONARY EMBOLISM
     Route: 048
     Dates: start: 20140124, end: 20140127
  3. DALTEPARIN [Concomitant]
     Route: 065
     Dates: start: 20140123
  4. SALBUTAMOL [Concomitant]
     Route: 065
  5. BECLOMETHASONE DIPROPIONATE [Concomitant]
     Route: 065

REACTIONS (4)
  - Gingival pain [Recovered/Resolved with Sequelae]
  - Vaginal haemorrhage [Recovered/Resolved with Sequelae]
  - Epistaxis [Recovered/Resolved]
  - Haematemesis [Recovered/Resolved]
